FAERS Safety Report 14162439 (Version 1)
Quarter: 2017Q4

REPORT INFORMATION
  Report Type: Spontaneous
  Country: US (occurrence: US)
  Receive Date: 20171106
  Receipt Date: 20171106
  Transmission Date: 20180321
  Serious: No
  Sender: FDA-Public Use
  Company Number: US-DRREDDYS-USA/USA/17/0087559

PATIENT
  Sex: Female
  Weight: 56.7 kg

DRUGS (2)
  1. CRANBERRY SUPPLEMENT [Concomitant]
     Indication: PRODUCT USED FOR UNKNOWN INDICATION
     Dosage: 450 UNITS
     Route: 048
     Dates: start: 2010
  2. NATEGLINIDE TABLETS [Suspect]
     Active Substance: NATEGLINIDE
     Indication: DIABETES MELLITUS
     Route: 048
     Dates: start: 201502

REACTIONS (2)
  - Product size issue [Unknown]
  - Product use complaint [Unknown]
